FAERS Safety Report 9263676 (Version 1)
Quarter: 2013Q2

REPORT INFORMATION
  Report Type: Spontaneous
  Country: US (occurrence: None)
  Receive Date: 20130429
  Receipt Date: 20130429
  Transmission Date: 20140414
  Serious: Yes (Other)
  Sender: FDA-Public Use
  Company Number: None

PATIENT
  Age: 12 Year
  Sex: Male
  Weight: 51.26 kg

DRUGS (2)
  1. SINGULAIR [Suspect]
     Indication: ASTHMA
     Route: 048
     Dates: start: 20080101, end: 20130410
  2. MONTELUKAST SODIUM [Suspect]
     Indication: ASTHMA
     Dosage: {1 YR
     Route: 048

REACTIONS (9)
  - Personality disorder [None]
  - Frustration [None]
  - Anger [None]
  - Product taste abnormal [None]
  - Therapy cessation [None]
  - Drug ineffective [None]
  - Wheezing [None]
  - Cough [None]
  - Syncope [None]
